FAERS Safety Report 5401905-5 (Version None)
Quarter: 2007Q3

REPORT INFORMATION
  Report Type: 
  Country: None (occurrence: None)
  Receive Date: 20070726
  Receipt Date: 20070621
  Transmission Date: 20080115
  Serious: Yes (Death)
  Sender: FDA-Public Use
  Company Number: 6035173

PATIENT
  Age: 60 Year
  Sex: Female

DRUGS (3)
  1. GLUCOPHAGE [Suspect]
     Indication: DIABETES MELLITUS
     Dosage: 2550 MG (850 MG, 3 IN 1 D), PER OS
  2. NOVONORM (2 MG) (REPAGLINIDE) [Suspect]
     Indication: DIABETES MELLITUS
     Dosage: 6 MG (2 MG, 3 IN 1 D); 3 MG (1 MG, 3 IN 1 D)
  3. LEXOTAN (BROMAZEPAM) [Concomitant]

REACTIONS (1)
  - INCORRECT DOSE ADMINISTERED [None]
